FAERS Safety Report 9774297 (Version 1)
Quarter: 2013Q4

REPORT INFORMATION
  Report Type: Spontaneous
  Country: GB (occurrence: GB)
  Receive Date: 20131220
  Receipt Date: 20131220
  Transmission Date: 20140711
  Serious: Yes (Other)
  Sender: FDA-Public Use
  Company Number: GB-JNJFOC-20131211059

PATIENT
  Age: 41 Year
  Sex: Male
  Weight: 102 kg

DRUGS (1)
  1. NICORETTE QUICKMIST [Suspect]
     Indication: PRODUCT USED FOR UNKNOWN INDICATION
     Dosage: DOSAGES/INTERVAL: 1 HOUR
     Route: 048
     Dates: start: 20131001, end: 20131122

REACTIONS (4)
  - Blister rupture [Recovered/Resolved]
  - Tonsillar haemorrhage [Recovered/Resolved]
  - Local swelling [Recovered/Resolved]
  - Abdominal pain upper [Recovered/Resolved]
